FAERS Safety Report 12359464 (Version 1)
Quarter: 2016Q2

REPORT INFORMATION
  Report Type: Spontaneous
  Country: US (occurrence: US)
  Receive Date: 20160512
  Receipt Date: 20160512
  Transmission Date: 20160815
  Serious: Yes (Hospitalization, Other)
  Sender: FDA-Public Use
  Company Number: US-PFIZER INC-2016247610

PATIENT
  Age: 23 Year
  Sex: Male
  Weight: 58.97 kg

DRUGS (1)
  1. BENEFIX [Suspect]
     Active Substance: COAGULATION FACTOR IX RECOMBINANT HUMAN\ISOPROPYL ALCOHOL
     Dosage: UNK

REACTIONS (4)
  - Hypoaesthesia [Unknown]
  - Poor peripheral circulation [Unknown]
  - Ligament disorder [Recovering/Resolving]
  - Peripheral swelling [Unknown]
